FAERS Safety Report 8492405-7 (Version None)
Quarter: 2012Q3

REPORT INFORMATION
  Report Type: 
  Country: None (occurrence: None)
  Receive Date: 20120706
  Receipt Date: 20120627
  Transmission Date: 20120928
  Serious: Yes (Hospitalization)
  Sender: FDA-Public Use
  Company Number: FR-ROCHE-1082583

PATIENT
  Age: 57 Year
  Sex: Female

DRUGS (12)
  1. MABTHERA [Suspect]
     Route: 042
     Dates: start: 20120220
  2. CHLORAMINOPHENE [Suspect]
     Route: 048
     Dates: start: 20120220
  3. AMOXICILLIN [Concomitant]
     Indication: DENTAL OPERATION
     Route: 048
     Dates: start: 20111118, end: 20111125
  4. IBUPROFEN [Concomitant]
     Indication: DENTAL CARE
     Route: 048
     Dates: start: 20111128, end: 20111130
  5. ACETAMINOPHEN [Concomitant]
     Route: 048
     Dates: start: 20111125, end: 20111128
  6. ACETAMINOPHEN [Concomitant]
     Indication: DENTAL CARE
     Route: 048
     Dates: start: 20111118, end: 20111120
  7. MABTHERA [Suspect]
     Indication: NODAL MARGINAL ZONE B-CELL LYMPHOMA
     Route: 042
     Dates: start: 20111107, end: 20111128
  8. ACETAMINOPHEN AND TRAMADOL HCL [Suspect]
     Indication: PAIN
     Route: 048
  9. CHLORAMINOPHENE [Suspect]
     Indication: NODAL MARGINAL ZONE B-CELL LYMPHOMA
     Dosage: 5 DOSEFORM
     Route: 048
     Dates: start: 20111116, end: 20111219
  10. FLUOXETINE HYDROCHLORIDE [Suspect]
     Indication: DEPRESSION
     Route: 048
  11. NORFLOXACIN [Concomitant]
     Indication: URINARY TRACT INFECTION
     Route: 048
     Dates: start: 20111116, end: 20111118
  12. NORFLOXACIN [Concomitant]
     Route: 048
     Dates: start: 20111130, end: 20111204

REACTIONS (2)
  - PRURITUS [None]
  - DERMATITIS EXFOLIATIVE [None]
